FAERS Safety Report 23097602 (Version 4)
Quarter: 2023Q4

REPORT INFORMATION
  Report Type: Report from Study
  Country: US (occurrence: US)
  Receive Date: 20231023
  Receipt Date: 20231123
  Transmission Date: 20240110
  Serious: Yes (Hospitalization)
  Sender: FDA-Public Use
  Company Number: US-EXELIXIS-XL18423069565

PATIENT

DRUGS (2)
  1. CABOZANTINIB [Suspect]
     Active Substance: CABOZANTINIB
     Indication: Hormone-refractory prostate cancer
     Dosage: 40 MILLIGRAMS
     Dates: start: 20230824, end: 20231012
  2. NIVOLUMAB [Suspect]
     Active Substance: NIVOLUMAB
     Indication: Hormone-refractory prostate cancer
     Dosage: 480 MILLIGRAMS
     Dates: start: 20230711, end: 20231012

REACTIONS (2)
  - Failure to thrive [Recovered/Resolved]
  - Metabolic encephalopathy [Recovered/Resolved]

NARRATIVE: CASE EVENT DATE: 20231013
